FAERS Safety Report 18260396 (Version 2)
Quarter: 2021Q2

REPORT INFORMATION
  Report Type: Spontaneous
  Country: RU (occurrence: RU)
  Receive Date: 20200914
  Receipt Date: 20210611
  Transmission Date: 20210717
  Serious: Yes (Life-Threatening)
  Sender: FDA-Public Use
  Company Number: RU-AMGEN-RUSSP2020145948

PATIENT
  Age: 61 Year
  Sex: Female
  Weight: 78 kg

DRUGS (1)
  1. NPLATE [Suspect]
     Active Substance: ROMIPLOSTIM
     Indication: IMMUNE THROMBOCYTOPENIA
     Dosage: 250 MICROGRAM, QWK
     Route: 058
     Dates: start: 20200109, end: 20200116

REACTIONS (4)
  - Procedural nausea [Recovered/Resolved]
  - Pain [Unknown]
  - Dizziness [Unknown]
  - Headache [Unknown]

NARRATIVE: CASE EVENT DATE: 20200110
